FAERS Safety Report 7983267-2 (Version None)
Quarter: 2011Q4

REPORT INFORMATION
  Report Type: 
  Country: None (occurrence: None)
  Receive Date: 20111215
  Receipt Date: 20111208
  Transmission Date: 20120403
  Serious: Yes (Hospitalization)
  Sender: FDA-Public Use
  Company Number: US-ELI_LILLY_AND_COMPANY-US201111005164

PATIENT
  Sex: Female
  Weight: 122.3 kg

DRUGS (10)
  1. PROTONIX [Concomitant]
  2. ADCIRCA [Suspect]
     Dosage: 40 MG, QD
  3. LASIX [Concomitant]
  4. REMODULIN [Concomitant]
  5. ALLOPURINOL [Concomitant]
  6. SPIRONOLACTONE [Concomitant]
  7. COUMADIN [Concomitant]
  8. ASPIRIN [Concomitant]
  9. SYNTHROID [Concomitant]
  10. ATENOLOL [Concomitant]

REACTIONS (2)
  - FLUID RETENTION [None]
  - BACK DISORDER [None]
